FAERS Safety Report 4877339-9 (Version None)
Quarter: 2006Q1

REPORT INFORMATION
  Report Type: 
  Country: None (occurrence: None)
  Receive Date: 20060106
  Receipt Date: 20051222
  Transmission Date: 20060701
  Serious: Yes (Hospitalization)
  Sender: FDA-Public Use
  Company Number: 2004-00877

PATIENT
  Age: 78 Year
  Sex: Male

DRUGS (11)
  1. VELCADE [Suspect]
     Indication: MULTIPLE MYELOMA
     Dosage: 2.50 MG, INTRAVENOUS
     Route: 042
     Dates: start: 20040921, end: 20041112
  2. PAMIDRONATE DISODIUM [Concomitant]
  3. BENADRYL (SODIUM CITRATE, MENTHOL, DIPHENHYDRAMINE HYDROCHLORIDE, AMMO [Concomitant]
  4. ACETAMINOPHEN [Concomitant]
  5. LORAZEPAM [Concomitant]
  6. EPREX [Concomitant]
  7. DOMPERIDONE (DOMPERIDONE) [Concomitant]
  8. KYTRIL [Concomitant]
  9. OXYCODONE (OXYCODONE) [Concomitant]
  10. RED BLOOD CELLS [Concomitant]
  11. METHOTRIMEPRAZINE (LEVOMEPROMAZINE) [Concomitant]

REACTIONS (13)
  - ASTHENIA [None]
  - CEREBRAL ATROPHY [None]
  - CEREBRAL ISCHAEMIA [None]
  - CONFUSIONAL STATE [None]
  - DISEASE PROGRESSION [None]
  - HERPES ZOSTER DISSEMINATED [None]
  - LUMBAR PUNCTURE ABNORMAL [None]
  - MULTIPLE MYELOMA [None]
  - MYOPATHY STEROID [None]
  - PAIN IN EXTREMITY [None]
  - PLEURAL CALCIFICATION [None]
  - POST HERPETIC NEURALGIA [None]
  - PULMONARY GRANULOMA [None]
